FAERS Safety Report 5461802-6 (Version None)
Quarter: 2007Q3

REPORT INFORMATION
  Report Type: 
  Country: None (occurrence: None)
  Receive Date: 20070920
  Receipt Date: 20061220
  Transmission Date: 20080115
  Serious: No
  Sender: FDA-Public Use
  Company Number: A0632060A

PATIENT
  Age: 59 Year
  Sex: Female

DRUGS (1)
  1. ABREVA [Suspect]
     Dates: start: 20061206

REACTIONS (3)
  - APPLICATION SITE ERYTHEMA [None]
  - APPLICATION SITE ULCER [None]
  - DRUG INEFFECTIVE [None]
